FAERS Safety Report 4954511-0 (Version None)
Quarter: 2006Q1

REPORT INFORMATION
  Report Type: 
  Country: None (occurrence: None)
  Receive Date: 20060322
  Receipt Date: 20060306
  Transmission Date: 20060701
  Serious: Yes (Hospitalization)
  Sender: FDA-Public Use
  Company Number: 2006EU000099

PATIENT
  Age: 61 Year
  Sex: Female

DRUGS (6)
  1. FK506 (TACROLIMUS) CAPSULE [Suspect]
     Indication: RENAL TRANSPLANT
     Dosage: 2 MG, BID, ORAL
     Route: 048
     Dates: start: 20031218
  2. DACLIZUMAB (DACLIZUMAB) [Suspect]
     Indication: RENAL TRANSPLANT
     Dosage: 2 MG/KG, UID/QD, IV NOS
     Route: 042
     Dates: start: 20031218
  3. MYCOPHENOLATE MOFETIL [Suspect]
     Indication: RENAL TRANSPLANT
     Dosage: 500 MG, BID, ORAL
     Route: 048
     Dates: start: 20031218
  4. CORTICOSTEROIDS () [Suspect]
  5. PREDNISONE TAB [Concomitant]
  6. SOTALOL HCL [Concomitant]

REACTIONS (2)
  - COMPLICATIONS OF TRANSPLANTED KIDNEY [None]
  - PYELONEPHRITIS ACUTE [None]
